FAERS Safety Report 9842180 (Version 1)
Quarter: 2014Q1

REPORT INFORMATION
  Report Type: Report from Study
  Country: US (occurrence: US)
  Receive Date: 20140124
  Receipt Date: 20140124
  Transmission Date: 20141002
  Serious: Yes (Other)
  Sender: FDA-Public Use
  Company Number: PHEH2014US001548

PATIENT
  Age: 26 Year
  Sex: Female

DRUGS (4)
  1. TASIGNA [Suspect]
     Indication: CHRONIC MYELOID LEUKAEMIA
     Dosage: 400 MG, BID
     Route: 048
     Dates: start: 20091211
  2. ALLOPURINOL [Concomitant]
  3. PREDNISONE [Concomitant]
  4. AZITHROMYCIN [Concomitant]

REACTIONS (1)
  - Sinusitis [Not Recovered/Not Resolved]
